FAERS Safety Report 5707248-4 (Version None)
Quarter: 2008Q2

REPORT INFORMATION
  Report Type: 
  Country: None (occurrence: None)
  Receive Date: 20080416
  Receipt Date: 20080407
  Transmission Date: 20081010
  Serious: Yes (Death, Hospitalization, Other)
  Sender: FDA-Public Use
  Company Number: JP-SANOFI-SYNTHELABO-A01200605639

PATIENT
  Sex: Male
  Weight: 59 kg

DRUGS (6)
  1. DECADRON [Concomitant]
     Indication: PREMEDICATION
     Dosage: 8 MG
     Route: 042
     Dates: start: 20060405, end: 20060703
  2. ISOVORIN [Concomitant]
     Dosage: 165 MG/BODY=100 MG/M2
     Route: 041
     Dates: start: 20060703, end: 20060704
  3. ELPLAT [Suspect]
     Indication: RECTAL CANCER
     Dosage: 100 MG/BODY=60.6 MG/M2
     Route: 041
     Dates: start: 20060703, end: 20060703
  4. HUMULIN R [Concomitant]
     Indication: DIABETES MELLITUS
     Dosage: 12 IU
     Route: 058
     Dates: start: 20060711, end: 20060711
  5. FLUOROURACIL [Suspect]
     Dosage: 500 MG/BODY=303 MG/M2 IN BOLUS THEN 800 MG/BODY=484.8 MG/M2 AS INFUSION
     Route: 042
     Dates: start: 20060703, end: 20060704
  6. KYTRIL [Concomitant]
     Indication: PREMEDICATION
     Dosage: 3 MG
     Route: 042
     Dates: start: 20060405, end: 20060703

REACTIONS (3)
  - CARDIAC ARREST [None]
  - NEUTROPENIA [None]
  - VOMITING [None]
